FAERS Safety Report 14720788 (Version 2)
Quarter: 2019Q2

REPORT INFORMATION
  Report Type: Spontaneous
  Country: US (occurrence: US)
  Receive Date: 20180405
  Receipt Date: 20190501
  Transmission Date: 20190711
  Serious: No
  Sender: FDA-Public Use
  Company Number: US-PFIZER INC-2018135853

PATIENT
  Age: 57 Year
  Sex: Female
  Weight: 124 kg

DRUGS (10)
  1. FEMARA [Concomitant]
     Active Substance: LETROZOLE
     Indication: OSTEOPOROSIS
     Dosage: 2.5 MG, 1X/DAY (IN THE EVENING)
     Dates: start: 201803
  2. VENLAFAXINE HCL [Concomitant]
     Active Substance: VENLAFAXINE HYDROCHLORIDE
     Dosage: 100 MG, DAILY
     Dates: start: 201804
  3. LEVOTHYROXINE. [Concomitant]
     Active Substance: LEVOTHYROXINE
     Dosage: 125 UG, DAILY
     Dates: start: 199801
  4. PROCHLORPERAZINE. [Concomitant]
     Active Substance: PROCHLORPERAZINE
     Indication: NAUSEA
     Dosage: UNK UNK, AS NEEDED
     Dates: start: 201804
  5. NORCO [Concomitant]
     Active Substance: ACETAMINOPHEN\HYDROCODONE BITARTRATE
     Indication: BREAST DISORDER
     Dosage: 1 DF, 4X/DAY, [HYDROCODONE BITARTRATE 5MG]/[PARACETAMOL 325MG], 1 EVERY 6 HOURS
     Dates: start: 201803
  6. NORCO [Concomitant]
     Active Substance: ACETAMINOPHEN\HYDROCODONE BITARTRATE
     Indication: LYMPH NODE PAIN
  7. ZOLPIDEM TARTRATE. [Concomitant]
     Active Substance: ZOLPIDEM TARTRATE
     Dosage: 5 MG, AS NEEDED
     Dates: start: 201811
  8. TRAZODONE HYDROCHLORIDE. [Concomitant]
     Active Substance: TRAZODONE HYDROCHLORIDE
     Dosage: 100 MG, DAILY
     Dates: start: 201901
  9. ONDANSETRON HCL [Concomitant]
     Active Substance: ONDANSETRON HYDROCHLORIDE
     Dosage: 4 MG, DAILY
     Dates: start: 201901
  10. IBRANCE [Suspect]
     Active Substance: PALBOCICLIB
     Indication: BREAST CANCER METASTATIC
     Dosage: 125 MG, CYCLIC(125MG; ONCE A DAY IN THE EVENING FOR 21 DAYS AND ONE WEEK OFF)
     Dates: start: 201803

REACTIONS (9)
  - Arthralgia [Not Recovered/Not Resolved]
  - Depressed mood [Unknown]
  - Fatigue [Not Recovered/Not Resolved]
  - Back pain [Not Recovered/Not Resolved]
  - Bone pain [Not Recovered/Not Resolved]
  - Sluggishness [Unknown]
  - Loss of personal independence in daily activities [Recovering/Resolving]
  - Mania [Unknown]
  - Malaise [Recovering/Resolving]

NARRATIVE: CASE EVENT DATE: 201803
